FAERS Safety Report 10875061 (Version 1)
Quarter: 2015Q1

REPORT INFORMATION
  Report Type: Spontaneous
  Country: US (occurrence: US)
  Receive Date: 20150227
  Receipt Date: 20150227
  Transmission Date: 20150721
  Serious: No
  Sender: FDA-Public Use
  Company Number: US-ASTRAZENECA-2015SE15755

PATIENT
  Age: 61 Year
  Sex: Female

DRUGS (6)
  1. FANAPT [Concomitant]
     Active Substance: ILOPERIDONE
     Indication: BIPOLAR DISORDER
  2. LAMICTAL [Concomitant]
     Active Substance: LAMOTRIGINE
  3. LOXAPINE. [Concomitant]
     Active Substance: LOXAPINE
  4. LITHIUM [Concomitant]
     Active Substance: LITHIUM CARBONATE
  5. SEROQUEL [Suspect]
     Active Substance: QUETIAPINE FUMARATE
     Route: 048
  6. RISPERDAL [Concomitant]
     Active Substance: RISPERIDONE

REACTIONS (2)
  - Activities of daily living impaired [Unknown]
  - Drug ineffective [Unknown]
